FAERS Safety Report 24335727 (Version 1)
Quarter: 2024Q3

REPORT INFORMATION
  Report Type: Spontaneous
  Country: CN (occurrence: CN)
  Receive Date: 20240919
  Receipt Date: 20240919
  Transmission Date: 20241017
  Serious: Yes (Other)
  Sender: TAKEDA
  Company Number: CN-JNJFOC-20240935806

PATIENT
  Age: 69 Year
  Sex: Male
  Weight: 63 kg

DRUGS (3)
  1. VELCADE [Suspect]
     Active Substance: BORTEZOMIB
     Indication: Plasma cell myeloma
     Dosage: 2.25 MILLIGRAM
     Route: 058
     Dates: start: 20240824, end: 20240824
  2. VELCADE [Suspect]
     Active Substance: BORTEZOMIB
     Dosage: 2.25 MILLIGRAM
     Route: 058
     Dates: start: 20240827, end: 20240827
  3. DEXAMETHASONE [Suspect]
     Active Substance: DEXAMETHASONE
     Indication: Plasma cell myeloma
     Dosage: 20 MILLIGRAM
     Route: 065
     Dates: start: 20240824

REACTIONS (1)
  - Hyperpyrexia [Recovering/Resolving]

NARRATIVE: CASE EVENT DATE: 20240827
